FAERS Safety Report 4743047-8 (Version None)
Quarter: 2005Q3

REPORT INFORMATION
  Report Type: 
  Country: None (occurrence: None)
  Receive Date: 20050811
  Receipt Date: 20050726
  Transmission Date: 20060218
  Serious: Yes (Hospitalization)
  Sender: FDA-Public Use
  Company Number: 2005BI008834

PATIENT
  Age: 46 Year
  Sex: Female

DRUGS (6)
  1. AVONEX [Suspect]
     Indication: MULTIPLE SCLEROSIS
     Dosage: 30 UG; QW; IM
     Route: 030
     Dates: start: 20030513
  2. ASPIRIN [Concomitant]
  3. ADVICOR [Concomitant]
  4. NITROGLYCERIN [Concomitant]
  5. METOPROLOL [Concomitant]
  6. PLAVIX [Concomitant]

REACTIONS (1)
  - CORONARY ARTERY OCCLUSION [None]
